FAERS Safety Report 8493241-8 (Version None)
Quarter: 2012Q3

REPORT INFORMATION
  Report Type: 
  Country: None (occurrence: None)
  Receive Date: 20120706
  Receipt Date: 20120705
  Transmission Date: 20120928
  Serious: Yes (Hospitalization, Other)
  Sender: FDA-Public Use
  Company Number: PHHO2011DE020139

PATIENT
  Sex: Female
  Weight: 75 kg

DRUGS (2)
  1. FTY [Suspect]
     Dosage: 0.5 MG, QD
     Route: 048
     Dates: start: 20110526, end: 20111120
  2. FAMPRIDINE [Suspect]
     Indication: MULTIPLE SCLEROSIS
     Dosage: 10 MG, BID
     Dates: start: 20111110, end: 20111120

REACTIONS (3)
  - PALPITATIONS [None]
  - EPILEPSY [None]
  - MYOCLONUS [None]
